FAERS Safety Report 9523688 (Version 1)
Quarter: 2013Q3

REPORT INFORMATION
  Report Type: Spontaneous
  Country: FR (occurrence: FR)
  Receive Date: 20130913
  Receipt Date: 20130913
  Transmission Date: 20140515
  Serious: Yes (Hospitalization)
  Sender: FDA-Public Use
  Company Number: FR-ROCHE-1271507

PATIENT
  Age: 67 Year
  Sex: Male

DRUGS (17)
  1. MABTHERA [Suspect]
     Indication: B-CELL LYMPHOMA
     Route: 042
     Dates: start: 20130725, end: 20130725
  2. FASTURTEC [Suspect]
     Indication: PROPHYLAXIS
     Route: 042
     Dates: start: 20130726, end: 20130726
  3. HOLOXAN [Suspect]
     Indication: B-CELL LYMPHOMA
     Route: 042
     Dates: start: 20130726, end: 20130726
  4. ETOPOSIDE [Suspect]
     Indication: B-CELL LYMPHOMA
     Route: 042
     Dates: start: 20130725, end: 20130727
  5. CARBOPLATIN [Suspect]
     Indication: B-CELL LYMPHOMA
     Route: 042
     Dates: start: 20130726, end: 20130726
  6. UROMITEXAN [Suspect]
     Indication: B-CELL LYMPHOMA
     Route: 042
     Dates: start: 20130726, end: 20130726
  7. CEFTRIAXONE [Suspect]
     Indication: B-CELL LYMPHOMA
     Route: 042
     Dates: start: 20130726, end: 20130729
  8. AMIKACINE [Suspect]
     Indication: B-CELL LYMPHOMA
     Route: 042
     Dates: start: 20130726, end: 20130729
  9. NARCAN [Concomitant]
  10. RIVOTRIL [Concomitant]
     Route: 065
     Dates: start: 20130727, end: 20130728
  11. FERRITIN [Concomitant]
     Route: 065
     Dates: start: 20130726
  12. FASTURTEC [Concomitant]
     Route: 065
     Dates: start: 20130726
  13. RITUXIMAB [Concomitant]
     Route: 065
  14. CYCLOPHOSPHAMIDE [Concomitant]
  15. DOXORUBICIN [Concomitant]
  16. VINCRISTINE [Concomitant]
  17. DEXAMETHASONE [Concomitant]

REACTIONS (1)
  - Encephalopathy [Recovered/Resolved]
